FAERS Safety Report 8457860-7 (Version None)
Quarter: 2012Q2

REPORT INFORMATION
  Report Type: 
  Country: None (occurrence: None)
  Receive Date: 20120323
  Receipt Date: 20110811
  Transmission Date: 20120825
  Serious: Yes (Other)
  Sender: FDA-Public Use
  Company Number: 163-21880-11081627

PATIENT
  Age: 69 Year
  Sex: Female

DRUGS (12)
  1. FEMHART (ANOVLAR) [Concomitant]
  2. CLARINEX [Concomitant]
  3. MICARDIS HCT [Concomitant]
  4. ACIPHEX [Concomitant]
  5. BL ASPIRIN (ACETYLSALICYLIC ACID) [Concomitant]
  6. EXJADE [Concomitant]
  7. REVLIMID [Suspect]
     Indication: MYELODYSPLASTIC SYNDROME
     Dosage: 10 MG, 1 IN 1 D, PO
     Route: 048
     Dates: start: 20101101, end: 20110401
  8. CALCITRATE/VITAMIN D (CALCIUM) [Concomitant]
  9. MULTIVITAMIN [Concomitant]
  10. OMEPRAZOLE [Concomitant]
  11. ACETAMINOPHEN [Concomitant]
  12. LOVAZA [Concomitant]

REACTIONS (1)
  - PANCYTOPENIA [None]
